FAERS Safety Report 5405553-2 (Version None)
Quarter: 2007Q3

REPORT INFORMATION
  Report Type: 
  Country: None (occurrence: None)
  Receive Date: 20070803
  Receipt Date: 20070723
  Transmission Date: 20080115
  Serious: Yes (Other)
  Sender: FDA-Public Use
  Company Number: US-PFIZER INC-2007062342

PATIENT
  Sex: Male
  Weight: 49.9 kg

DRUGS (1)
  1. CHANTIX [Suspect]

REACTIONS (6)
  - ANXIETY [None]
  - ARTHRALGIA [None]
  - DRUG TOLERANCE [None]
  - FEELING ABNORMAL [None]
  - JOINT DISLOCATION [None]
  - LOSS OF CONSCIOUSNESS [None]
